FAERS Safety Report 8432251-3 (Version None)
Quarter: 2012Q2

REPORT INFORMATION
  Report Type: 
  Country: None (occurrence: None)
  Receive Date: 20120613
  Receipt Date: 20120605
  Transmission Date: 20120825
  Serious: Yes (Hospitalization)
  Sender: FDA-Public Use
  Company Number: IT-UCBSA-058592

PATIENT
  Age: 72 Year
  Sex: Female

DRUGS (3)
  1. CIMZIA [Suspect]
     Indication: RHEUMATOID ARTHRITIS
     Route: 058
     Dates: start: 20120228, end: 20120503
  2. MEDROL [Concomitant]
     Indication: RHEUMATOID ARTHRITIS
     Dosage: TOTAL DAILY DOSE: 4MG
     Route: 048
  3. CALCITRIOL [Concomitant]
     Indication: VITAMIN D DEFICIENCY
     Dosage: TOTAL DAILY DOSE:0.25 MG
     Route: 048

REACTIONS (1)
  - DEEP VEIN THROMBOSIS [None]
